FAERS Safety Report 19178919 (Version 1)
Quarter: 2021Q2

REPORT INFORMATION
  Report Type: Spontaneous
  Country: US (occurrence: US)
  Receive Date: 20210426
  Receipt Date: 20210426
  Transmission Date: 20210717
  Serious: Yes (Other)
  Sender: FDA-Public Use
  Company Number: US-AUROBINDO-AUR-APL-2021-016797

PATIENT
  Age: 4 Month
  Sex: Male

DRUGS (7)
  1. PREDNISONE. [Suspect]
     Active Substance: PREDNISONE
     Indication: PRODUCT USED FOR UNKNOWN INDICATION
     Dosage: 60 MG/M2, DAILY
     Route: 065
  2. VINCRISTINE SULFATE. [Suspect]
     Active Substance: VINCRISTINE SULFATE
     Indication: PRODUCT USED FOR UNKNOWN INDICATION
     Dosage: 1.5 MG/M2 (DOSE FOR 1 HOUR)
     Route: 042
  3. DEXAMETHASONE. [Suspect]
     Active Substance: DEXAMETHASONE
     Indication: PRODUCT USED FOR UNKNOWN INDICATION
     Dosage: 6 MG/M2, DAILY
     Route: 065
  4. DAUNORUBICIN [Suspect]
     Active Substance: DAUNORUBICIN
     Indication: PRODUCT USED FOR UNKNOWN INDICATION
     Dosage: 30 MG/M2 (DOSE FOR 1 HOUR )
     Route: 042
  5. CYTARABINE. [Suspect]
     Active Substance: CYTARABINE
     Indication: PRODUCT USED FOR UNKNOWN INDICATION
     Dosage: 75 MG/M2 (DOSE FOR 30 MIN)
     Route: 042
  6. ASPARAGINASE [Suspect]
     Active Substance: ASPARAGINASE
     Indication: PRODUCT USED FOR UNKNOWN INDICATION
     Dosage: UNK (10000 U/M2/DOSE FOR 1 HOUR)
     Route: 042
  7. LESTAURTINIB [Concomitant]
     Active Substance: LESTAURTINIB
     Indication: PRODUCT USED FOR UNKNOWN INDICATION
     Dosage: UNK
     Route: 065

REACTIONS (1)
  - Febrile neutropenia [Recovered/Resolved]
